FAERS Safety Report 22789615 (Version 4)
Quarter: 2024Q2

REPORT INFORMATION
  Report Type: Report from Study
  Country: US (occurrence: US)
  Receive Date: 20230804
  Receipt Date: 20240530
  Transmission Date: 20240716
  Serious: No
  Sender: FDA-Public Use
  Company Number: US-002147023-NVSC2023US171183

PATIENT
  Age: 43 Year
  Sex: Male

DRUGS (1)
  1. KESIMPTA [Suspect]
     Active Substance: OFATUMUMAB
     Indication: Multiple sclerosis
     Dosage: 20 MG, QMO
     Route: 058
     Dates: start: 20220923

REACTIONS (3)
  - Paternal exposure during pregnancy [Unknown]
  - Oral herpes [Unknown]
  - Product supply issue [Unknown]

NARRATIVE: CASE EVENT DATE: 20221001
